FAERS Safety Report 22172325 (Version 4)
Quarter: 2023Q2

REPORT INFORMATION
  Report Type: Spontaneous
  Country: CH (occurrence: CH)
  Receive Date: 20230404
  Receipt Date: 20230424
  Transmission Date: 20230722
  Serious: Yes (Other)
  Sender: FDA-Public Use
  Company Number: None

PATIENT
  Age: 58 Year
  Sex: Male

DRUGS (37)
  1. SOLU-CORTEF [Suspect]
     Active Substance: HYDROCORTISONE SODIUM SUCCINATE
     Dosage: 100 MG, 1X/DAY
     Route: 042
     Dates: start: 20230307, end: 20230307
  2. SOLU-CORTEF [Suspect]
     Active Substance: HYDROCORTISONE SODIUM SUCCINATE
     Dosage: 100 MG, 3X/DAY (Q8H)
     Route: 042
     Dates: start: 20230308, end: 20230309
  3. AMLODIPINE BESYLATE [Suspect]
     Active Substance: AMLODIPINE BESYLATE
     Dosage: 10 MG, 1X/DAY (Q8H)
     Route: 048
     Dates: start: 20230315
  4. PIPERACILLIN SODIUM\TAZOBACTAM SODIUM [Suspect]
     Active Substance: PIPERACILLIN SODIUM\TAZOBACTAM SODIUM
     Indication: Pneumonia
     Dosage: 4.5 G, 3X/DAY
     Route: 042
     Dates: start: 20230308, end: 20230308
  5. PIPERACILLIN SODIUM\TAZOBACTAM SODIUM [Suspect]
     Active Substance: PIPERACILLIN SODIUM\TAZOBACTAM SODIUM
     Dosage: 4.5 G, 3X/DAY (Q8H)
     Route: 042
     Dates: start: 20230311, end: 20230312
  6. PIPERACILLIN SODIUM\TAZOBACTAM SODIUM [Suspect]
     Active Substance: PIPERACILLIN SODIUM\TAZOBACTAM SODIUM
     Indication: Pneumonia
     Dosage: 4.5 G, 1X/DAY
     Route: 042
     Dates: start: 20230307, end: 20230307
  7. PIPERACILLIN SODIUM\TAZOBACTAM SODIUM [Suspect]
     Active Substance: PIPERACILLIN SODIUM\TAZOBACTAM SODIUM
     Dosage: 4.5 G, 3X/DAY (Q8H)
     Route: 042
     Dates: start: 20230308, end: 20230308
  8. AMIKACIN [Suspect]
     Active Substance: AMIKACIN
     Dosage: UNK
     Dates: start: 20230308
  9. CEFTRIAXONE [Suspect]
     Active Substance: CEFTRIAXONE
     Indication: Pneumonia
     Dosage: 4 G, 1X/DAY
     Route: 042
     Dates: start: 20230309, end: 20230309
  10. CEFTRIAXONE [Suspect]
     Active Substance: CEFTRIAXONE
     Dosage: 2 G, 1X/DAY
     Route: 042
     Dates: start: 20230310, end: 20230310
  11. AMOXICILLIN\CLAVULANATE POTASSIUM [Suspect]
     Active Substance: AMOXICILLIN\CLAVULANATE POTASSIUM
     Indication: Pneumonia
     Dosage: 2.2 G, 3X/DAY (Q8H)
     Route: 042
     Dates: start: 20230310, end: 20230310
  12. AMOXICILLIN\CLAVULANATE POTASSIUM [Suspect]
     Active Substance: AMOXICILLIN\CLAVULANATE POTASSIUM
     Dosage: 1.2 G, 1X/DAY
     Route: 042
     Dates: start: 20230311, end: 20230311
  13. AMOXICILLIN\CLAVULANATE POTASSIUM [Suspect]
     Active Substance: AMOXICILLIN\CLAVULANATE POTASSIUM
     Dosage: 1.2 G, 4X/DAY (Q6H)
     Route: 042
     Dates: start: 20230313, end: 20230315
  14. AMOXICILLIN\CLAVULANATE POTASSIUM [Suspect]
     Active Substance: AMOXICILLIN\CLAVULANATE POTASSIUM
     Dosage: 1.2 G, 4X/DAY (Q6H)
     Route: 042
     Dates: start: 20230315
  15. AMOXICILLIN\CLAVULANATE POTASSIUM [Suspect]
     Active Substance: AMOXICILLIN\CLAVULANATE POTASSIUM
     Indication: Pneumonia
     Dosage: 1 G, 3X/DAY (Q8H)
     Route: 048
     Dates: start: 20230316
  16. DAFALGAN [Suspect]
     Active Substance: ACETAMINOPHEN
     Dosage: 500 MG, 2X/DAY
     Route: 048
     Dates: start: 20230311, end: 20230312
  17. DAFALGAN [Suspect]
     Active Substance: ACETAMINOPHEN
     Dosage: 1000 MG, 3X/DAY (Q8H)
     Route: 048
     Dates: start: 20230313, end: 20230315
  18. DAFALGAN [Suspect]
     Active Substance: ACETAMINOPHEN
     Dosage: 500 MG, 4X/DAY (AS NECESSARY)
     Route: 048
     Dates: start: 20230316
  19. ENALAPRIL [Suspect]
     Active Substance: ENALAPRIL
     Dosage: 5 MG, 2X/DAY
     Route: 048
     Dates: start: 20230316
  20. ENALAPRIL MALEATE [Suspect]
     Active Substance: ENALAPRIL MALEATE
     Dosage: 5 MG, 2X/DAY
     Route: 048
     Dates: start: 20230311, end: 20230311
  21. ENALAPRIL MALEATE [Suspect]
     Active Substance: ENALAPRIL MALEATE
     Dosage: 10 MG, 2X/DAY
     Route: 048
     Dates: start: 20230312, end: 20230315
  22. ENALAPRIL MALEATE [Suspect]
     Active Substance: ENALAPRIL MALEATE
     Dosage: 10 MG, 2X/DAY
     Route: 048
     Dates: start: 20230315
  23. IMIPENEM [Suspect]
     Active Substance: IMIPENEM
     Dosage: UNK
     Route: 065
     Dates: start: 20230312, end: 20230313
  24. LEVOFLOXACIN [Suspect]
     Active Substance: LEVOFLOXACIN
     Dosage: UNK
     Route: 065
     Dates: start: 20230308
  25. ESOMEPRAZOLE MAGNESIUM [Suspect]
     Active Substance: ESOMEPRAZOLE MAGNESIUM
     Dosage: 40 MG, 1X/DAY
     Route: 042
     Dates: start: 20230308, end: 20230311
  26. ESOMEPRAZOLE MAGNESIUM [Suspect]
     Active Substance: ESOMEPRAZOLE MAGNESIUM
     Dosage: 40 MG, 1X/DAY
     Route: 042
     Dates: start: 20230311
  27. ESOMEPRAZOLE MAGNESIUM [Suspect]
     Active Substance: ESOMEPRAZOLE MAGNESIUM
     Dosage: 40 MG, 1X/DAY
     Route: 048
     Dates: start: 20230312
  28. ACETAMINOPHEN [Suspect]
     Active Substance: ACETAMINOPHEN
     Indication: Pain
     Dosage: 1 G, 2X/DAY
     Route: 065
     Dates: end: 20230306
  29. QUETIAPINE [Suspect]
     Active Substance: QUETIAPINE
     Dosage: 25 MG, 2X/DAY
     Route: 048
     Dates: start: 20230314
  30. LEVOFLOXACIN [Suspect]
     Active Substance: LEVOFLOXACIN
     Indication: Pneumonia
     Dosage: 500 MG, 1X/DAY
     Route: 042
     Dates: start: 20230308, end: 20230308
  31. VANCOMYCIN [Suspect]
     Active Substance: VANCOMYCIN
     Indication: Pneumonia
     Dosage: 1 G, 1X/DAY
     Route: 042
     Dates: start: 20230307, end: 20230307
  32. VANCOMYCIN [Suspect]
     Active Substance: VANCOMYCIN
     Dosage: 2 G, 1X/DAY
     Route: 042
     Dates: start: 20230308, end: 20230308
  33. AMIKIN [Concomitant]
     Active Substance: AMIKACIN SULFATE
     Dosage: 1500 MG, 1X/DAY
     Route: 042
     Dates: start: 20230308, end: 20230308
  34. IBUPROFEN [Concomitant]
     Active Substance: IBUPROFEN
     Indication: Pain
     Dosage: UNK
     Route: 065
     Dates: end: 20230306
  35. INSULIN NOS [Concomitant]
     Active Substance: INSULIN NOS
     Dosage: UNK
     Route: 042
     Dates: start: 20230312, end: 20230315
  36. PROPOFOL [Concomitant]
     Active Substance: PROPOFOL
     Dosage: UNK
     Route: 042
     Dates: start: 20230307, end: 20230311
  37. CILASTATIN SODIUM\IMIPENEM [Concomitant]
     Active Substance: CILASTATIN SODIUM\IMIPENEM
     Dosage: 3 G, 1X/DAY
     Route: 042
     Dates: start: 20230312, end: 20230313

REACTIONS (1)
  - Mixed liver injury [Not Recovered/Not Resolved]

NARRATIVE: CASE EVENT DATE: 20230307
